FAERS Safety Report 7899053 (Version 5)
Quarter: 2014Q1

REPORT INFORMATION
  Report Type: Spontaneous
  Country: US (occurrence: US)
  Receive Date: 20110414
  Receipt Date: 20140310
  Transmission Date: 20141002
  Serious: Yes (Hospitalization, Other)
  Sender: FDA-Public Use
  Company Number: US-ROCHE-574594

PATIENT
  Age: 25 Year
  Sex: Female
  Weight: 44.9 kg

DRUGS (1)
  1. ACCUTANE [Suspect]
     Indication: ACNE
     Route: 048
     Dates: start: 19981123, end: 19990309

REACTIONS (12)
  - Colitis ulcerative [Unknown]
  - Inflammatory bowel disease [Unknown]
  - Depression [Unknown]
  - Pouchitis [Unknown]
  - Cough [Unknown]
  - Upper respiratory tract congestion [Unknown]
  - Oropharyngeal pain [Unknown]
  - Erythema [Unknown]
  - Dysmenorrhoea [Unknown]
  - Ovarian cyst [Unknown]
  - Endometritis [Unknown]
  - Anaemia [Unknown]
